FAERS Safety Report 23193909 (Version 2)
Quarter: 2024Q1

REPORT INFORMATION
  Report Type: Spontaneous
  Country: CA (occurrence: CA)
  Receive Date: 20231116
  Receipt Date: 20240125
  Transmission Date: 20240409
  Serious: Yes (Other)
  Sender: FDA-Public Use
  Company Number: CA-AMGEN-CANSP2023201675

PATIENT
  Sex: Male

DRUGS (15)
  1. INFLIXIMAB [Suspect]
     Active Substance: INFLIXIMAB
     Indication: Juvenile idiopathic arthritis
     Dosage: UNK
     Route: 065
  2. ADALIMUMAB [Suspect]
     Active Substance: ADALIMUMAB\ISOPROPYL ALCOHOL
     Indication: Juvenile idiopathic arthritis
     Dosage: UNK  (FROM 35 MONTHS OF POST-HSCT)
     Route: 065
  3. RITUXIMAB [Suspect]
     Active Substance: RITUXIMAB
     Indication: Still^s disease
     Dosage: UNK (21, 31 MONTHS POST-HSCT)
     Route: 065
  4. METHYLPREDNISOLONE [Concomitant]
     Active Substance: METHYLPREDNISOLONE
     Dosage: 30 MILLIGRAM/KG
     Route: 065
  5. CYCLOSPORINE [Concomitant]
     Active Substance: CYCLOSPORINE
     Dosage: UNK  (FROM 0 DAY UNTIL 10 MONTHS OF POST-HSCT)
     Route: 065
  6. CYCLOSPORINE [Concomitant]
     Active Substance: CYCLOSPORINE
     Dosage: UNK  (FROM 12 UNTIL 21 MONTHS OF POST-HSCT)
     Route: 065
  7. TOFACITINIB [Concomitant]
     Active Substance: TOFACITINIB
     Dosage: UNK  (FROM 24 UNTIL MONTH 16 MONTHS OF PRE-HSCT)
     Route: 065
  8. TOFACITINIB [Concomitant]
     Active Substance: TOFACITINIB
     Dosage: (FROM 12, 26 UNTIL MONTH 25, 46 MONTHS OF POST-HSCT)
     Route: 065
  9. METHOTREXATE [Concomitant]
     Active Substance: METHOTREXATE
     Dosage: UNK (FROM }1 MONTH OF DIAGNOSIS 34 MONTHS OF PRE-HSCT)
     Route: 065
  10. CANAKINUMAB [Concomitant]
     Active Substance: CANAKINUMAB
     Dosage: UNK (FROM 32 UNTIL MONTH 29 MONTHS OF PRE-HSCT)
     Route: 065
  11. SILTUXIMAB [Concomitant]
     Active Substance: SILTUXIMAB
     Dosage: UNK (FROM 6 UNTIL MONTH 1 MONTH OF PRE-HSCT)
     Route: 065
  12. FLUDARABINE [Concomitant]
     Active Substance: FLUDARABINE PHOSPHATE
     Dosage: 180 MILLIGRAM/M^2 (1 MONTH OF PRE-HSCT)
     Route: 065
  13. BUSULFAN [Concomitant]
     Active Substance: BUSULFAN
     Dosage: UNK
     Route: 065
  14. THYMOCYTE IMMUNE GLOBULIN NOS [Concomitant]
     Active Substance: THYMOCYTE IMMUNE GLOBULIN NOS
     Dosage: 7.5 MILLIGRAM/KG
     Route: 065
  15. MYCOPHENOLATE MOFETIL [Concomitant]
     Active Substance: MYCOPHENOLATE MOFETIL
     Dosage: UNK  (FROM 0 DAY UNTIL 4 MONTHS OF POST-HSCT)
     Route: 065

REACTIONS (20)
  - Epstein-Barr virus infection reactivation [Recovered/Resolved]
  - Juvenile idiopathic arthritis [Recovered/Resolved]
  - Cataract [Recovered/Resolved]
  - Steatohepatitis [Recovered/Resolved]
  - Pneumonia viral [Recovered/Resolved]
  - Osteopenia [Recovered/Resolved]
  - Short stature [Recovered/Resolved]
  - Cushingoid [Recovered/Resolved]
  - Bone erosion [Recovered/Resolved]
  - Hepatic steatosis [Recovered/Resolved]
  - Mucosal inflammation [Recovered/Resolved]
  - Spinal instability [Recovered/Resolved]
  - Foot fracture [Recovered/Resolved]
  - Drug effective for unapproved indication [Unknown]
  - Off label use [Unknown]
  - COVID-19 [Recovered/Resolved]
  - Hypertension [Recovered/Resolved]
  - Rhinovirus infection [Recovered/Resolved]
  - Cystitis viral [Recovered/Resolved]
  - BK virus infection [Recovered/Resolved]
